FAERS Safety Report 20657588 (Version 2)
Quarter: 2022Q3

REPORT INFORMATION
  Report Type: Spontaneous
  Country: US (occurrence: US)
  Receive Date: 20220331
  Receipt Date: 20220731
  Transmission Date: 20221027
  Serious: No
  Sender: FDA-Public Use
  Company Number: US-SA-SAC20220328000726

PATIENT
  Age: 47 Year
  Sex: Male

DRUGS (2)
  1. DUPIXENT [Suspect]
     Active Substance: DUPILUMAB
     Dosage: 300 MG
     Route: 058
     Dates: start: 20211130
  2. CLOBETASOL [Concomitant]
     Active Substance: CLOBETASOL
     Indication: Dermatitis atopic
     Dosage: DOSAGE: BID 2WEEKLY
     Route: 061
     Dates: start: 20200818

REACTIONS (1)
  - Dizziness [Recovered/Resolved]

NARRATIVE: CASE EVENT DATE: 20211221
